FAERS Safety Report 9180052 (Version 1)
Quarter: 2013Q1

REPORT INFORMATION
  Report Type: Spontaneous
  Country: US (occurrence: US)
  Receive Date: 20130321
  Receipt Date: 20130321
  Transmission Date: 20140127
  Serious: Yes (Other)
  Sender: FDA-Public Use
  Company Number: US-US-EMD SERONO, INC.-7045081

PATIENT
  Sex: Female

DRUGS (2)
  1. REBIF [Suspect]
     Indication: PRODUCT USED FOR UNKNOWN INDICATION
     Route: 058
     Dates: start: 20090216, end: 201011
  2. FOSAMAX [Concomitant]
     Indication: PRODUCT USED FOR UNKNOWN INDICATION

REACTIONS (7)
  - Lymphoma [Recovering/Resolving]
  - Hip fracture [Recovering/Resolving]
  - Metastases to bone [Recovering/Resolving]
  - Gastrointestinal disorder [Unknown]
  - Emotional disorder [Unknown]
  - Hypertonic bladder [Unknown]
  - Osteoporosis [Unknown]
